FAERS Safety Report 18432962 (Version 2)
Quarter: 2021Q2

REPORT INFORMATION
  Report Type: Spontaneous
  Country: US (occurrence: US)
  Receive Date: 20201027
  Receipt Date: 20210519
  Transmission Date: 20210717
  Serious: No
  Sender: FDA-Public Use
  Company Number: US-PFIZER INC-2017500169

PATIENT
  Age: 70 Year
  Sex: Female

DRUGS (5)
  1. LYRICA [Suspect]
     Active Substance: PREGABALIN
     Indication: PAIN
     Dosage: 150 MG, THREE TIMES A DAY
     Route: 048
     Dates: start: 20190219
  2. LYRICA [Suspect]
     Active Substance: PREGABALIN
     Indication: OSTEOARTHRITIS
  3. LYRICA [Suspect]
     Active Substance: PREGABALIN
     Indication: ARTHRALGIA
     Dosage: 150 MG, THREE TIMES A DAY
     Route: 048
     Dates: start: 20190314
  4. LYRICA [Suspect]
     Active Substance: PREGABALIN
     Indication: COMPLEX REGIONAL PAIN SYNDROME
     Dosage: 150 MG, THREE TIMES A DAY
     Route: 048
     Dates: start: 20171115
  5. LYRICA [Suspect]
     Active Substance: PREGABALIN
     Indication: LIMB CRUSHING INJURY

REACTIONS (1)
  - Eye injury [Unknown]
